FAERS Safety Report 9799441 (Version 1)
Quarter: 2014Q1

REPORT INFORMATION
  Report Type: Spontaneous
  Country: US (occurrence: None)
  Receive Date: 20140103
  Receipt Date: 20140103
  Transmission Date: 20141002
  Serious: Yes (Other)
  Sender: FDA-Public Use
  Company Number: None

PATIENT
  Age: 74 Year
  Sex: Female

DRUGS (1)
  1. FORTEO [Suspect]
     Indication: OSTEOPOROSIS
     Route: 058
     Dates: start: 20120712, end: 20140102

REACTIONS (3)
  - Burning sensation [None]
  - Breast disorder [None]
  - Jaw disorder [None]
